FAERS Safety Report 23775162 (Version 2)
Quarter: 2025Q3

REPORT INFORMATION
  Report Type: Spontaneous
  Country: US (occurrence: US)
  Receive Date: 20240423
  Receipt Date: 20250825
  Transmission Date: 20251021
  Serious: No
  Sender: SANOFI AVENTIS
  Company Number: US-SA-SAC20240423000064

PATIENT
  Age: 36 Year
  Sex: Female

DRUGS (2)
  1. DUPIXENT [Suspect]
     Active Substance: DUPILUMAB
     Indication: Eosinophilic oesophagitis
     Dosage: 300 MG, QW
     Route: 058
     Dates: start: 202401
  2. DUPIXENT [Suspect]
     Active Substance: DUPILUMAB
     Dosage: 300 MG, QW
     Route: 058
     Dates: start: 202506, end: 20250801

REACTIONS (10)
  - Weight increased [Unknown]
  - Eye discharge [Unknown]
  - Myalgia [Unknown]
  - Ocular hyperaemia [Unknown]
  - Insomnia [Unknown]
  - Injection site swelling [Recovered/Resolved]
  - Dry eye [Recovered/Resolved]
  - Eye irritation [Unknown]
  - Eye pruritus [Recovered/Resolved]
  - Arthralgia [Unknown]

NARRATIVE: CASE EVENT DATE: 20240101
